FAERS Safety Report 18332524 (Version 2)
Quarter: 2020Q4

REPORT INFORMATION
  Report Type: Spontaneous
  Country: US (occurrence: US)
  Receive Date: 20200930
  Receipt Date: 20201009
  Transmission Date: 20210113
  Serious: Yes (Other)
  Sender: FDA-Public Use
  Company Number: US-009507513-2009USA008002

PATIENT
  Age: 64 Year
  Sex: Male
  Weight: 107.05 kg

DRUGS (1)
  1. SIMVASTATIN. [Suspect]
     Active Substance: SIMVASTATIN
     Indication: LOW DENSITY LIPOPROTEIN INCREASED
     Dosage: 20 MILLIGRAM (MG), ONCE A DAY BY MOUTH (TAKING FOR 3-4 YEARS)
     Route: 048
     Dates: start: 2016, end: 20200907

REACTIONS (9)
  - Muscle injury [Unknown]
  - Dyspepsia [Unknown]
  - Pain [Unknown]
  - Crying [Unknown]
  - Vomiting [Unknown]
  - Abdominal discomfort [Recovering/Resolving]
  - Liver injury [Unknown]
  - Dysphonia [Unknown]
  - Myalgia [Not Recovered/Not Resolved]

NARRATIVE: CASE EVENT DATE: 202009
